FAERS Safety Report 18062834 (Version 2)
Quarter: 2021Q2

REPORT INFORMATION
  Report Type: Spontaneous
  Country: US (occurrence: US)
  Receive Date: 20200724
  Receipt Date: 20210629
  Transmission Date: 20210717
  Serious: Yes (Death)
  Sender: FDA-Public Use
  Company Number: US-TEVA-2020-US-1804392

PATIENT
  Sex: Female

DRUGS (11)
  1. TRAZODONE [Suspect]
     Active Substance: TRAZODONE HYDROCHLORIDE
     Route: 065
  2. POTASSIUM [Suspect]
     Active Substance: POTASSIUM
     Route: 065
  3. METOPROLOL. [Suspect]
     Active Substance: METOPROLOL
     Route: 065
  4. GABAPENTIN. [Suspect]
     Active Substance: GABAPENTIN
     Route: 065
  5. OXYCONTIN [Suspect]
     Active Substance: OXYCODONE HYDROCHLORIDE
     Route: 065
  6. FLECAINIDE [Suspect]
     Active Substance: FLECAINIDE
     Route: 065
  7. ESCITALOPRAM [Suspect]
     Active Substance: ESCITALOPRAM OXALATE
     Route: 065
  8. METFORMIN [Suspect]
     Active Substance: METFORMIN HYDROCHLORIDE
     Route: 065
  9. BETHANECHOL [Suspect]
     Active Substance: BETHANECHOL
     Route: 065
  10. TIZANIDINE. [Suspect]
     Active Substance: TIZANIDINE
     Route: 065
  11. MAGNESIUM [Suspect]
     Active Substance: MAGNESIUM
     Route: 065

REACTIONS (1)
  - Death [Fatal]
